FAERS Safety Report 8837459 (Version 1)
Quarter: 2012Q4

REPORT INFORMATION
  Report Type: 
  Country: US (occurrence: US)
  Receive Date: 20121012
  Receipt Date: 20121012
  Transmission Date: 20130627
  Serious: Yes (Hospitalization, Other)
  Sender: FDA-Public Use
  Company Number: US-GENZYME-CLOF-1002347

PATIENT
  Age: 13 Year
  Sex: Female
  Weight: 40.9 kg

DRUGS (3)
  1. CLOLAR [Suspect]
     Indication: LYMPHOCYTIC LEUKAEMIA
     Dosage: UNK
     Route: 065
     Dates: start: 20120905, end: 20120909
  2. CYCLOPHOSPHAMIDE [Suspect]
     Indication: LYMPHOCYTIC LEUKAEMIA
     Dosage: UNK
     Route: 065
     Dates: start: 20120905, end: 20120909
  3. ETOPOSIDE [Suspect]
     Indication: LYMPHOCYTIC LEUKAEMIA
     Dosage: UNK
     Route: 065
     Dates: start: 20120905, end: 20120909

REACTIONS (5)
  - Pneumonitis [Unknown]
  - Stomatitis [Not Recovered/Not Resolved]
  - Urinary tract infection bacterial [Recovered/Resolved]
  - Hepatic infection [Unknown]
  - Neutrophil count decreased [Not Recovered/Not Resolved]
